FAERS Safety Report 25636544 (Version 1)
Quarter: 2025Q3

REPORT INFORMATION
  Report Type: Spontaneous
  Country: JP (occurrence: JP)
  Receive Date: 20250804
  Receipt Date: 20250804
  Transmission Date: 20251021
  Serious: Yes (Other)
  Sender: LP PHARMACEUTICALS INC
  Company Number: JP-LP Pharmaceuticals Inc -2181753

PATIENT
  Age: 18 Year
  Sex: Female

DRUGS (1)
  1. ARIPIPRAZOLE [Suspect]
     Active Substance: ARIPIPRAZOLE
     Indication: Impulsive behaviour

REACTIONS (1)
  - Serotonin syndrome [Recovered/Resolved]
